FAERS Safety Report 16745126 (Version 1)
Quarter: 2019Q3

REPORT INFORMATION
  Report Type: Spontaneous
  Country: US (occurrence: US)
  Receive Date: 20190823
  Receipt Date: 20190823
  Transmission Date: 20191005
  Serious: No
  Sender: FDA-Public Use
  Company Number: None

PATIENT

DRUGS (2)
  1. NALOXONE HCL [Suspect]
     Active Substance: NALOXONE HYDROCHLORIDE
     Dosage: I.V., I.M., OR S.C.
  2. HEPARIN SOD [Suspect]
     Active Substance: HEPARIN SODIUM
     Dosage: INTRAVENOUS OR SQ

REACTIONS (2)
  - Product label confusion [None]
  - Wrong drug [None]
